FAERS Safety Report 6285274-7 (Version None)
Quarter: 2009Q3

REPORT INFORMATION
  Report Type: 
  Country: None (occurrence: None)
  Receive Date: 20090727
  Receipt Date: 20090717
  Transmission Date: 20100115
  Serious: Yes (Hospitalization, Other)
  Sender: FDA-Public Use
  Company Number: AR-ALEXION-A200900583

PATIENT

DRUGS (3)
  1. SOLIRIS [Suspect]
     Indication: PAROXYSMAL NOCTURNAL HAEMOGLOBINURIA
     Dosage: 600 MG, UNK
     Route: 042
     Dates: start: 20090622
  2. CORTICOSTEROID NOS [Concomitant]
  3. OSELTAMIVIR [Concomitant]
     Indication: PNEUMONIA

REACTIONS (4)
  - FEBRILE NEUTROPENIA [None]
  - NEUTROPENIA [None]
  - PNEUMONIA [None]
  - VIRAL INFECTION [None]
